FAERS Safety Report 21394278 (Version 1)
Quarter: 2022Q3

REPORT INFORMATION
  Report Type: Spontaneous
  Country: DE (occurrence: DE)
  Receive Date: 20220930
  Receipt Date: 20220930
  Transmission Date: 20221027
  Serious: Yes (Hospitalization)
  Sender: FDA-Public Use
  Company Number: DE-ADRED-07530-02

PATIENT
  Age: 89 Year
  Sex: Female
  Weight: 50 kg

DRUGS (11)
  1. RAMIPRIL [Suspect]
     Active Substance: RAMIPRIL
     Indication: Product used for unknown indication
     Dosage: 1 DOSAGE FORMS DAILY; 5 MG, 1-0-0-0, UNIT DOSE : 1 DF , FREQUENCY : OD
  2. FENTANYL [Suspect]
     Active Substance: FENTANYL
     Indication: Product used for unknown indication
     Dosage: 37.5 MCG/H, EVERY 3 DAYS, PATCH TRANSDERMAL
  3. SPIRONOLACTONE [Suspect]
     Active Substance: SPIRONOLACTONE
     Indication: Product used for unknown indication
     Dosage: 1 DOSAGE FORMS DAILY; 50 MG, 1-0-0-0, UNIT DOSE : 1 DF , FREQUENCY : OD
  4. EDOXABAN [Suspect]
     Active Substance: EDOXABAN
     Indication: Product used for unknown indication
     Dosage: 1 DOSAGE FORMS DAILY; 30 MG, 1-0-0-0, UNIT DOSE : 1 DF , FREQUENCY : OD
  5. PRAMIPEXOLE [Concomitant]
     Active Substance: PRAMIPEXOLE
     Indication: Product used for unknown indication
     Dosage: 1 DOSAGE FORMS DAILY; 0.52 MG, 1-0-0-0, UNIT DOSE : 1 DF , FREQUENCY : OD
  6. METFORMIN [Concomitant]
     Active Substance: METFORMIN HYDROCHLORIDE
     Indication: Product used for unknown indication
     Dosage: 2 DOSAGE FORMS DAILY; 1000 MG, 1-0-1-0, UNIT DOSE : 1 DF , FREQUENCY : BD
  7. TORSEMIDE [Concomitant]
     Active Substance: TORSEMIDE
     Indication: Product used for unknown indication
     Dosage: 1 DOSAGE FORMS DAILY; 20 MG, 1-0-0-0, UNIT DOSE : 1 DF , FREQUENCY : OD
  8. METAMIZOLE [Concomitant]
     Active Substance: METAMIZOLE
     Indication: Product used for unknown indication
     Dosage: 3 DOSAGE FORMS DAILY; 500 MG, 1-1-1-0, UNIT DOSE : 1 DF , FREQUENCY : 3 TIMES A DAY
  9. QUETIAPINE [Concomitant]
     Active Substance: QUETIAPINE
     Indication: Product used for unknown indication
     Dosage: 50 MG, 0-0-1-0.5
  10. BISOPROLOL [Concomitant]
     Active Substance: BISOPROLOL
     Indication: Product used for unknown indication
     Dosage: 1 DOSAGE FORMS DAILY; 2.5 MG, 1-0-0-0, UNIT DOSE : 1 DF , FREQUENCY : OD
  11. PANTOPRAZOLE [Concomitant]
     Active Substance: PANTOPRAZOLE
     Indication: Product used for unknown indication
     Dosage: 2 DOSAGE FORMS DAILY; 20 MG, 1-0-1-0, UNIT DOSE : 1 DF , FREQUENCY : BD

REACTIONS (8)
  - Pain [Unknown]
  - Haematoma [Unknown]
  - Fall [Unknown]
  - Fall [Unknown]
  - Fall [Unknown]
  - Dyspnoea [Unknown]
  - General physical health deterioration [Unknown]
  - Anaemia [Unknown]
